FAERS Safety Report 8985755 (Version 1)
Quarter: 2012Q4

REPORT INFORMATION
  Report Type: 
  Country: IE (occurrence: IE)
  Receive Date: 20121226
  Receipt Date: 20121226
  Transmission Date: 20130627
  Serious: Yes (Other)
  Sender: FDA-Public Use
  Company Number: IE-ABBOTT-12P-229-1010804-00

PATIENT
  Age: 0 Year
  Sex: Female
  Weight: 4.46 kg

DRUGS (1)
  1. SYNAGIS [Suspect]
     Indication: PREMATURE BABY
     Route: 030
     Dates: start: 20121016

REACTIONS (3)
  - Wheezing [Recovering/Resolving]
  - Breath sounds abnormal [Recovered/Resolved]
  - Hypophagia [Unknown]
